FAERS Safety Report 20670533 (Version 1)
Quarter: 2022Q2

REPORT INFORMATION
  Report Type: Spontaneous
  Country: US (occurrence: None)
  Receive Date: 20220402
  Receipt Date: 20220402
  Transmission Date: 20220721
  Serious: Yes (Hospitalization)
  Sender: FDA-Public Use
  Company Number: None

PATIENT
  Sex: Female
  Weight: 62 kg

DRUGS (1)
  1. TECHNETIUM TC-99M [Suspect]
     Active Substance: TECHNETIUM TC-99M

REACTIONS (9)
  - Glossodynia [None]
  - Dysphagia [None]
  - Dysarthria [None]
  - Erythema [None]
  - Erythema [None]
  - Swelling [None]
  - Skin discolouration [None]
  - Localised oedema [None]
  - Oedema mouth [None]

NARRATIVE: CASE EVENT DATE: 20220305
